FAERS Safety Report 8572193-6 (Version None)
Quarter: 2012Q2

REPORT INFORMATION
  Report Type: 
  Country: None (occurrence: None)
  Receive Date: 20120423
  Receipt Date: 20100819
  Transmission Date: 20120825
  Serious: Yes (Hospitalization)
  Sender: FDA-Public Use
  Company Number: PHHY2010US54731

PATIENT
  Age: 53 Year
  Sex: Female
  Weight: 59.4 kg

DRUGS (7)
  1. HYDREA [Concomitant]
  2. EXJADE [Suspect]
     Indication: SICKLE CELL ANAEMIA
     Dosage: 1125 MG, DAILY, ORAL
     Route: 048
     Dates: start: 20100715
  3. DESFERAL [Suspect]
  4. MS CONTIN [Concomitant]
  5. COMPAZINE [Concomitant]
  6. MS CONTIN [Concomitant]
  7. FOLIC ACID [Concomitant]

REACTIONS (5)
  - SICKLE CELL ANAEMIA WITH CRISIS [None]
  - NAUSEA [None]
  - VOMITING [None]
  - STRESS [None]
  - PAIN IN EXTREMITY [None]
